FAERS Safety Report 13191059 (Version 1)
Quarter: 2017Q1

REPORT INFORMATION
  Report Type: Spontaneous
  Country: US (occurrence: US)
  Receive Date: 20170207
  Receipt Date: 20170207
  Transmission Date: 20170428
  Serious: Yes (Death, Other)
  Sender: FDA-Public Use
  Company Number: US-ROCHE-1890008

PATIENT

DRUGS (1)
  1. ACTEMRA [Suspect]
     Active Substance: TOCILIZUMAB
     Indication: JUVENILE IDIOPATHIC ARTHRITIS
     Dosage: ONGOING;NO
     Route: 065

REACTIONS (4)
  - Anal fistula [Unknown]
  - Abscess [Unknown]
  - Histiocytosis haematophagic [Unknown]
  - Death [Fatal]
